FAERS Safety Report 10373937 (Version 1)
Quarter: 2014Q1

REPORT INFORMATION
  Report Type: Spontaneous
  Country: US (occurrence: None)
  Receive Date: 20140306
  Receipt Date: 20140306
  Transmission Date: 20141002
  Serious: Yes (Other)
  Sender: FDA-Public Use
  Company Number: 163-21880-13013507

PATIENT
  Age: 54 Year
  Sex: Male
  Weight: 107.5 kg

DRUGS (22)
  1. REVLIMID (LENALIDOMIDE) (25 MILLIGRAM, CAPSULES) [Suspect]
     Indication: PLASMA CELL MYELOMA
     Route: 048
     Dates: start: 20120315, end: 20120509
  2. IVIG (IMMUNOGLOBULIN) [Concomitant]
  3. OXYGEN (OXYGEN) [Concomitant]
  4. AMITRIPTYLINE (AMITRIPTYLINE) [Concomitant]
  5. CENTRUM SILVER (CENTRUM SILVER) [Concomitant]
  6. DEXAMETHASONE (DEXAMETHASONE) [Concomitant]
  7. HYDROCODONE (HYDROCODONE) [Concomitant]
  8. LEVOTHYROXINE (LEVOTHYROXINE) [Concomitant]
  9. METOPROLOL (METOPROLOL) [Concomitant]
  10. ONDANSETRON HCL (ONDANSETRON HYDROCHLORIDE) [Concomitant]
  11. POTASSIUM BICARBONATE (POTASSIUM BICARBONATE) [Concomitant]
  12. PREDNISONE (PREDNISONE) (TABLETS) [Concomitant]
  13. PROAIR HFA (SALBUTAMOL SULFATE) [Concomitant]
  14. RAPAMUNE (SIROLIMUS) [Concomitant]
  15. REQUIP (ROPINIROLE HYDROCHLORIDE) [Concomitant]
  16. SPIRIVA (TIOTROPIUM BROMIDE) [Concomitant]
  17. VELCADE (BORTEZOMIB) [Concomitant]
  18. VITAMIN B1 (THIAMINE HYDROCHLORIDE) [Concomitant]
  19. VITAMIN B6 (PYRIDOXINE HYDROCHLORIDE) [Concomitant]
  20. WARFARIN (WARFARIN) [Concomitant]
  21. ZOMETA (ZOLEDRONIC ACID) [Concomitant]
  22. VITAMIN B12 (CYANOCOBALAMIN) [Concomitant]

REACTIONS (2)
  - Platelet count decreased [None]
  - Plasma cell myeloma [None]
